FAERS Safety Report 19011401 (Version 3)
Quarter: 2022Q1

REPORT INFORMATION
  Report Type: Report from Study
  Country: JP (occurrence: JP)
  Receive Date: 20210315
  Receipt Date: 20220301
  Transmission Date: 20220423
  Serious: Yes (Hospitalization)
  Sender: FDA-Public Use
  Company Number: JP-CELGENE-JPN-20210302728

PATIENT
  Age: 61 Year
  Sex: Female
  Weight: 74.8 kg

DRUGS (34)
  1. AZACITIDINE [Suspect]
     Active Substance: AZACITIDINE
     Indication: Angioimmunoblastic T-cell lymphoma
     Dosage: 200 MILLIGRAM
     Route: 048
     Dates: start: 20200818, end: 20200831
  2. AZACITIDINE [Suspect]
     Active Substance: AZACITIDINE
     Dosage: UNKNOWN
     Route: 048
  3. AZACITIDINE [Suspect]
     Active Substance: AZACITIDINE
     Dosage: 200 MILLIGRAM
     Route: 048
     Dates: start: 20210202, end: 20210215
  4. MAGNESIUM OXIDE [Concomitant]
     Active Substance: MAGNESIUM OXIDE
     Indication: Product used for unknown indication
     Dosage: UNKNOWN
     Route: 065
     Dates: end: 20200820
  5. FEBUXOSTAT [Concomitant]
     Active Substance: FEBUXOSTAT
     Indication: Product used for unknown indication
     Dosage: UNKNOWN
     Route: 065
  6. LANSOPRAZOLE [Concomitant]
     Active Substance: LANSOPRAZOLE
     Indication: Product used for unknown indication
     Dosage: UNKNOWN
     Route: 065
     Dates: end: 20201007
  7. CANDESARTAN CILEXETIL [Concomitant]
     Active Substance: CANDESARTAN CILEXETIL
     Indication: Product used for unknown indication
     Dosage: UNKNOWN
     Route: 065
  8. TRAVOPROST [Concomitant]
     Active Substance: TRAVOPROST
     Indication: Product used for unknown indication
     Dosage: UNKNOWN
     Route: 065
  9. TIMOLOL MALEATE [Concomitant]
     Active Substance: TIMOLOL MALEATE
     Indication: Product used for unknown indication
     Dosage: UNKNOWN
     Route: 065
  10. Ripasudil hydrochloride hydrate [Concomitant]
     Indication: Product used for unknown indication
     Dosage: UNKNOWN
     Route: 065
  11. INFLUENZA VIRUS VACCINE [Concomitant]
     Active Substance: INFLUENZA VIRUS VACCINE
     Indication: Prophylaxis
     Dosage: UNKNOWN
     Route: 065
     Dates: start: 20201105, end: 20201105
  12. DIFLUPREDNATE [Concomitant]
     Active Substance: DIFLUPREDNATE
     Indication: Cutaneous vasculitis
     Dosage: UNKNOWN
     Route: 065
     Dates: start: 20200910, end: 20201109
  13. DIFLUPREDNATE [Concomitant]
     Active Substance: DIFLUPREDNATE
     Indication: Epstein-Barr virus infection
     Dosage: UNKNOWN
     Route: 065
     Dates: start: 20210128
  14. ATOVAQUONE [Concomitant]
     Active Substance: ATOVAQUONE
     Indication: Prophylaxis
     Dosage: UNKNOWN
     Route: 065
     Dates: start: 20200821
  15. DEXTROSE\SODIUM CHLORIDE\SODIUM LACTATE [Concomitant]
     Active Substance: DEXTROSE\SODIUM CHLORIDE\SODIUM LACTATE
     Indication: Prophylaxis
     Dosage: UNKNOWN
     Route: 065
     Dates: start: 20200817, end: 20200822
  16. AMLODIPINE BESYLATE [Concomitant]
     Active Substance: AMLODIPINE BESYLATE
     Indication: Hypertension
     Dosage: UNKNOWN
     Route: 065
     Dates: start: 20200821
  17. ACETAMINOPHEN [Concomitant]
     Active Substance: ACETAMINOPHEN
     Indication: Prophylaxis
     Dosage: UNKNOWN
     Route: 065
     Dates: start: 20210216, end: 20210216
  18. ACETAMINOPHEN [Concomitant]
     Active Substance: ACETAMINOPHEN
     Dosage: UNKNOWN
     Route: 065
     Dates: start: 20210222, end: 20210222
  19. ACETAMINOPHEN [Concomitant]
     Active Substance: ACETAMINOPHEN
     Dosage: UNKNOWN
     Route: 065
     Dates: start: 20210301, end: 20210301
  20. ACETAMINOPHEN [Concomitant]
     Active Substance: ACETAMINOPHEN
     Dosage: UNKNOWN
     Route: 065
     Dates: start: 20210409, end: 20210411
  21. DEXCHLORPHENIRAMINE MALEATE [Concomitant]
     Active Substance: DEXCHLORPHENIRAMINE MALEATE
     Indication: Prophylaxis
     Dosage: UNKNOWN
     Route: 065
     Dates: start: 20210216, end: 20210216
  22. DEXCHLORPHENIRAMINE MALEATE [Concomitant]
     Active Substance: DEXCHLORPHENIRAMINE MALEATE
     Indication: Infusion related reaction
     Dosage: UNKNOWN
     Route: 065
     Dates: start: 20210216, end: 20210216
  23. DEXCHLORPHENIRAMINE MALEATE [Concomitant]
     Active Substance: DEXCHLORPHENIRAMINE MALEATE
     Dosage: UNKNOWN
     Route: 065
     Dates: start: 20210222, end: 20210222
  24. DEXCHLORPHENIRAMINE MALEATE [Concomitant]
     Active Substance: DEXCHLORPHENIRAMINE MALEATE
     Dosage: UNKNOWN
     Route: 065
     Dates: start: 20210301, end: 20210301
  25. Prednisolone sodium [Concomitant]
     Indication: Prophylaxis
     Dosage: UNKNOWN
     Route: 065
     Dates: start: 20210216, end: 20210216
  26. Prednisolone sodium [Concomitant]
     Dosage: UNKNOWN
     Route: 065
     Dates: start: 20210222, end: 20210222
  27. HYDROCORTISONE SODIUM SUCCINATE [Concomitant]
     Active Substance: HYDROCORTISONE SODIUM SUCCINATE
     Indication: Infusion related reaction
     Dosage: UNKNOWN
     Route: 065
     Dates: start: 20210216, end: 20210216
  28. HYDROCORTISONE SODIUM SUCCINATE [Concomitant]
     Active Substance: HYDROCORTISONE SODIUM SUCCINATE
     Indication: Prophylaxis
     Dosage: UNKNOWN
     Route: 065
     Dates: start: 20210301, end: 20210301
  29. ATORVASTATIN CALCIUM [Concomitant]
     Active Substance: ATORVASTATIN CALCIUM
     Indication: Hyperlipidaemia
     Dosage: UNKNOWN
     Route: 065
     Dates: start: 20201208
  30. CEFACLOR [Concomitant]
     Active Substance: CEFACLOR
     Indication: Prophylaxis
     Dosage: UNKNOWN
     Route: 065
     Dates: start: 20210401, end: 20210404
  31. LOXOPROFEN SODIUM DIHYDRATE [Concomitant]
     Active Substance: LOXOPROFEN SODIUM DIHYDRATE
     Indication: Prophylaxis
     Dosage: UNKNOWN
     Route: 065
     Dates: start: 20210401, end: 20210404
  32. CHLORHEXIDINE GLUCONATE [Concomitant]
     Active Substance: CHLORHEXIDINE GLUCONATE
     Indication: Prophylaxis
     Dosage: UNKNOWN
     Route: 065
     Dates: start: 20210401, end: 20210404
  33. CEFCAPENE PIVOXIL HYDROCHLORIDE [Concomitant]
     Active Substance: CEFCAPENE PIVOXIL HYDROCHLORIDE
     Indication: Prophylaxis
     Dosage: UNKNOWN
     Route: 065
     Dates: start: 20210409, end: 20210411
  34. GENTAMICIN SULFATE [Concomitant]
     Active Substance: GENTAMICIN SULFATE
     Indication: Prophylaxis
     Dosage: UNKNOWN
     Route: 065
     Dates: start: 20210409, end: 20210411

REACTIONS (1)
  - Epstein-Barr virus infection reactivation [Not Recovered/Not Resolved]

NARRATIVE: CASE EVENT DATE: 20210118
